FAERS Safety Report 6181122-4 (Version None)
Quarter: 2009Q2

REPORT INFORMATION
  Report Type: 
  Country: None (occurrence: None)
  Receive Date: 20090506
  Receipt Date: 20090423
  Transmission Date: 20091009
  Serious: Yes (Hospitalization, Other)
  Sender: FDA-Public Use
  Company Number: PHHY2009US16293

PATIENT
  Age: 68 Year
  Sex: Male

DRUGS (10)
  1. METOPROLOL SUCCINATE [Suspect]
  2. NITROGLYCERIN [Suspect]
  3. LISINOPRIL [Concomitant]
  4. PAROXETINE HCL [Concomitant]
  5. ASPIRIN [Concomitant]
  6. OMEPRAZOLE [Concomitant]
  7. TERAZOSIN HCL [Concomitant]
  8. ACYCLOVIR [Concomitant]
  9. IBUPROFEN [Concomitant]
  10. ATORVASTATIN [Concomitant]

REACTIONS (13)
  - ANAEMIA [None]
  - DRUG ERUPTION [None]
  - EAR PAIN [None]
  - ERYTHEMA [None]
  - EXTERNAL EAR DISORDER [None]
  - EXTERNAL EAR INFLAMMATION [None]
  - HYPERKERATOSIS [None]
  - POLYCHONDRITIS [None]
  - POST INFLAMMATORY PIGMENTATION CHANGE [None]
  - PULMONARY EMBOLISM [None]
  - RED BLOOD CELL SEDIMENTATION RATE INCREASED [None]
  - SKIN LESION [None]
  - URTICARIA [None]
